FAERS Safety Report 6220728-0 (Version None)
Quarter: 2009Q2

REPORT INFORMATION
  Report Type: 
  Country: None (occurrence: None)
  Receive Date: 20090610
  Receipt Date: 20090529
  Transmission Date: 20091009
  Serious: Yes (Other)
  Sender: FDA-Public Use
  Company Number: PHHY2008JP32796

PATIENT
  Sex: Male

DRUGS (6)
  1. DIOVAN T30230+TAB+HY [Suspect]
     Indication: HYPERTENSION
     Dosage: 80 MG, QD
     Dates: start: 20070830, end: 20071025
  2. DIOVAN T30230+TAB+HY [Suspect]
     Dosage: 160 MG, QD
     Route: 048
     Dates: start: 20071026, end: 20080225
  3. DIOVAN T30230+TAB+HY [Suspect]
     Dosage: 80 MG, QD
     Route: 048
     Dates: start: 20080226
  4. AMLODIPINE [Concomitant]
     Indication: HYPERTENSION
     Dosage: 5 MG, UNK
     Route: 048
     Dates: start: 20070510
  5. NU-LOTAN [Concomitant]
     Indication: HYPERTENSION
     Dosage: 50 MG, UNK
     Route: 048
     Dates: start: 20070510, end: 20070829
  6. BASEN [Concomitant]
     Dosage: 0.9 MG, UNK
     Route: 048
     Dates: start: 20070510

REACTIONS (10)
  - ALBUMIN URINE PRESENT [None]
  - BLOOD CHOLESTEROL [None]
  - BLOOD CREATININE INCREASED [None]
  - BLOOD POTASSIUM INCREASED [None]
  - BLOOD PRESSURE INCREASED [None]
  - BLOOD TRIGLYCERIDES INCREASED [None]
  - BLOOD UREA INCREASED [None]
  - CONDITION AGGRAVATED [None]
  - DIABETIC NEPHROPATHY [None]
  - LOW DENSITY LIPOPROTEIN INCREASED [None]
